FAERS Safety Report 5151594-2 (Version None)
Quarter: 2006Q4

REPORT INFORMATION
  Report Type: 
  Country: None (occurrence: None)
  Receive Date: 20061115
  Receipt Date: 20051118
  Transmission Date: 20070319
  Serious: No
  Sender: FDA-Public Use
  Company Number: US-BRISTOL-MYERS SQUIBB COMPANY-13187729

PATIENT
  Sex: Male
  Weight: 88 kg

DRUGS (2)
  1. SUSTIVA [Suspect]
     Indication: HIV INFECTION
     Dosage: STARTED IN 2002, RESTARTED 18-NOV-2005
     Dates: start: 20020101
  2. TRUVADA [Concomitant]

REACTIONS (3)
  - NIGHTMARE [None]
  - RASH ERYTHEMATOUS [None]
  - RASH PRURITIC [None]
